FAERS Safety Report 4501240-3 (Version None)
Quarter: 2004Q3

REPORT INFORMATION
  Report Type: 
  Country: None (occurrence: None)
  Receive Date: 20040927
  Receipt Date: 20040618
  Transmission Date: 20050211
  Serious: No
  Sender: FDA-Public Use
  Company Number: US_0406103874

PATIENT
  Age: 8 Year
  Sex: Male
  Weight: 32 kg

DRUGS (2)
  1. STRATTERA [Suspect]
     Dosage: 25 MG/1 DAY
     Route: 048
  2. DEPAKOTE [Concomitant]

REACTIONS (4)
  - AGITATION [None]
  - DYSPHORIA [None]
  - EMOTIONAL DISORDER OF CHILDHOOD [None]
  - IRRITABILITY [None]
